FAERS Safety Report 11871162 (Version 1)
Quarter: 2015Q4

REPORT INFORMATION
  Report Type: Spontaneous
  Country: GB (occurrence: GB)
  Receive Date: 20151228
  Receipt Date: 20151228
  Transmission Date: 20160305
  Serious: Yes (Other)
  Sender: FDA-Public Use
  Company Number: GB-PFIZER INC-2015457788

PATIENT
  Age: 72 Year
  Sex: Female
  Weight: 68 kg

DRUGS (13)
  1. AMLODIPINE [Concomitant]
     Active Substance: AMLODIPINE BESYLATE
     Dosage: 1 DF, 1X/DAY TAKE ONE DAILY
     Dates: start: 20150427
  2. FENCINO [Concomitant]
     Dosage: 1 DF, EVERY 72 HOURS (AS DIRECTED)
     Dates: start: 20151012
  3. ZOLPIDEM [Concomitant]
     Active Substance: ZOLPIDEM\ZOLPIDEM TARTRATE
     Dosage: 1 DF, 1X/DAY NOCTE
     Dates: start: 20150427
  4. GABAPENTIN. [Suspect]
     Active Substance: GABAPENTIN
     Dosage: UNK
     Dates: start: 20150427
  5. LANSOPRAZOLE. [Concomitant]
     Active Substance: LANSOPRAZOLE
     Dosage: 1 DF, 2X/DAY
     Dates: start: 20150427
  6. BRUFEN [Concomitant]
     Active Substance: IBUPROFEN
     Dosage: 1 DF, 4X/DAY
     Dates: start: 20150427
  7. FENTANYL. [Concomitant]
     Active Substance: FENTANYL
     Dosage: 1 DF, EVERY 72 HOURS (AS DIRECTED)
     Dates: start: 20150427, end: 20151012
  8. TRAMADOL. [Concomitant]
     Active Substance: TRAMADOL
     Dosage: 1 DF, 2X/DAY
     Dates: start: 20151210
  9. GABAPENTIN. [Suspect]
     Active Substance: GABAPENTIN
     Dosage: UNK
     Dates: start: 20151210
  10. LYRICA [Concomitant]
     Active Substance: PREGABALIN
     Dosage: 1 DF, 2X/DAY
     Dates: start: 20151110, end: 20151208
  11. BECLOMETASONE [Concomitant]
     Active Substance: BECLOMETHASONE DIPROPIONATE
     Dosage: 1 DF, 2X/DAY
     Dates: start: 20150427
  12. PARACETAMOL [Concomitant]
     Active Substance: ACETAMINOPHEN
     Dosage: 2 DF, 4X/DAY
     Dates: start: 20151210
  13. RAMIPRIL. [Concomitant]
     Active Substance: RAMIPRIL
     Dosage: 1 DF, 1X/DAY
     Dates: start: 20150427

REACTIONS (1)
  - Gingival pain [Recovering/Resolving]

NARRATIVE: CASE EVENT DATE: 20151210
